FAERS Safety Report 5865070-2 (Version None)
Quarter: 2008Q3

REPORT INFORMATION
  Report Type: 
  Country: None (occurrence: None)
  Receive Date: 20080829
  Receipt Date: 20080822
  Transmission Date: 20090109
  Serious: Yes (Hospitalization)
  Sender: FDA-Public Use
  Company Number: A0730972A

PATIENT
  Age: 60 Year
  Sex: Male
  Weight: 138.6 kg

DRUGS (4)
  1. AVANDIA [Suspect]
     Indication: TYPE 2 DIABETES MELLITUS
     Dosage: 8MG PER DAY
     Route: 048
     Dates: start: 20040901, end: 20070622
  2. INDAPAMIDE [Concomitant]
     Dates: start: 19920101
  3. DIOVAN [Concomitant]
  4. SIMVASTATIN [Concomitant]

REACTIONS (9)
  - CARDIAC ARREST [None]
  - CEREBROVASCULAR ACCIDENT [None]
  - FLUID OVERLOAD [None]
  - FLUID RETENTION [None]
  - HEART INJURY [None]
  - HEPATIC FAILURE [None]
  - INJURY [None]
  - LIVER INJURY [None]
  - PAIN [None]
